FAERS Safety Report 17186523 (Version 7)
Quarter: 2022Q1

REPORT INFORMATION
  Report Type: Report from Study
  Country: US (occurrence: US)
  Receive Date: 20191220
  Receipt Date: 20220117
  Transmission Date: 20220423
  Serious: Yes (Hospitalization, Other)
  Sender: FDA-Public Use
  Company Number: None

PATIENT
  Age: 71 Year
  Sex: Female

DRUGS (1)
  1. GILENYA [Suspect]
     Active Substance: FINGOLIMOD HYDROCHLORIDE
     Indication: Relapsing-remitting multiple sclerosis
     Dosage: 0.5 MG, QD
     Route: 048
     Dates: start: 20180303

REACTIONS (10)
  - Myocardial infarction [Unknown]
  - Blood pressure abnormal [Unknown]
  - Cerebrovascular accident [Unknown]
  - Fall [Unknown]
  - Muscular weakness [Unknown]
  - Gait disturbance [Unknown]
  - Arthropathy [Unknown]
  - Aphasia [Unknown]
  - Memory impairment [Unknown]
  - Asthenia [Unknown]

NARRATIVE: CASE EVENT DATE: 20191117
